FAERS Safety Report 19773928 (Version 1)
Quarter: 2021Q3

REPORT INFORMATION
  Report Type: Spontaneous
  Country: US (occurrence: US)
  Receive Date: 20210901
  Receipt Date: 20210901
  Transmission Date: 20211014
  Serious: No
  Sender: FDA-Public Use
  Company Number: US-DRREDDYS-SPO/USA/21/0139279

PATIENT
  Age: 17 Year
  Sex: Female
  Weight: 81 kg

DRUGS (4)
  1. ZENATANE [Suspect]
     Active Substance: ISOTRETINOIN
     Dosage: 40 TO 80 MG DAILY TO AVERAGE OUT OF 60 MG DAILY THE LAST 3 WEEKS THE PATIENT HAS GONE DOWN TO 40 MG
     Dates: start: 20201130, end: 20210819
  2. METFORMIN [Concomitant]
     Active Substance: METFORMIN HYDROCHLORIDE
     Indication: PRODUCT USED FOR UNKNOWN INDICATION
  3. ZENATANE [Suspect]
     Active Substance: ISOTRETINOIN
     Indication: ACNE
     Dosage: 40 TO 80 MG DAILY TO AVERAGE OUT OF 60 MG DAILY THE LAST 3 WEEKS THE PATIENT HAS GONE DOWN TO 40 MG
     Dates: start: 20201130, end: 20210819
  4. ZENATANE [Suspect]
     Active Substance: ISOTRETINOIN
     Dosage: 40 TO 80 MG DAILY TO AVERAGE OUT OF 60 MG DAILY THE LAST 3 WEEKS THE PATIENT HAS GONE DOWN TO 40 MG
     Dates: start: 20201130, end: 20210819

REACTIONS (5)
  - Vulvovaginal dryness [Unknown]
  - Nasal dryness [Unknown]
  - Vaginal haemorrhage [Unknown]
  - Vaginal perforation [Unknown]
  - Chapped lips [Unknown]
